FAERS Safety Report 8565393-2 (Version None)
Quarter: 2012Q3

REPORT INFORMATION
  Report Type: 
  Country: None (occurrence: None)
  Receive Date: 20120803
  Receipt Date: 20120126
  Transmission Date: 20120928
  Serious: Yes (Hospitalization, Other)
  Sender: FDA-Public Use
  Company Number: US-009507513-2010SP006063

PATIENT

DRUGS (15)
  1. KEPPRA [Concomitant]
     Indication: EPILEPSY
     Dosage: UNCLEAR WHETHER 16JAN RENEWAL OR START DATE
     Route: 048
     Dates: start: 20080116
  2. FLONASE [Concomitant]
     Dosage: 50 ?G, QD
     Route: 045
     Dates: start: 20071004
  3. ARMODAFINIL [Concomitant]
     Indication: VULVOVAGINAL MYCOTIC INFECTION
     Dosage: 150 MG, ONCE
     Route: 048
     Dates: start: 20080214, end: 20080214
  4. VALIUM [Concomitant]
     Dosage: 2 MG, ONCE
     Route: 048
     Dates: start: 20080201, end: 20080201
  5. COUMADIN [Suspect]
     Indication: PULMONARY EMBOLISM
     Dosage: 5 MG, QD
     Dates: start: 20080601
  6. CYMBALTA [Concomitant]
  7. NUVARING [Suspect]
     Indication: UTERINE LEIOMYOMA
     Dates: start: 20071201, end: 20080622
  8. FLAGYL [Concomitant]
     Dosage: 500 MG, BID
     Route: 048
     Dates: start: 20080207
  9. SINGULAIR [Concomitant]
     Dosage: 10 MG, QD
     Route: 048
     Dates: start: 20071004
  10. HYDROCHLOROTHIAZDE TAB [Concomitant]
     Indication: HYPERTENSION
     Dosage: 12.5 MG, UNK
     Dates: start: 20071201
  11. IBUPROFEN [Concomitant]
     Dosage: Q 8 HRS PRN
     Route: 048
     Dates: start: 20080207
  12. BACTRIM DS [Concomitant]
     Indication: CYSTITIS
     Dosage: 160/800 MG
     Route: 048
     Dates: start: 20080221
  13. ANAPROX DS [Concomitant]
     Dosage: 550 MG, BID
     Dates: start: 20071213
  14. BENAZEPRIL HYDROCHLORIDE (+) HYDROCHLOROTHIAZIDE [Concomitant]
     Dosage: 20/12.5 MG
  15. HYDROCODONE POLISTIREX (+) PHENYLTOLOXAMINE POLISTIREX [Concomitant]
     Dosage: 1 TSP

REACTIONS (8)
  - HYPOKALAEMIA [None]
  - CYSTITIS [None]
  - NEUROPATHY PERIPHERAL [None]
  - OFF LABEL USE [None]
  - VULVOVAGINAL MYCOTIC INFECTION [None]
  - PULMONARY EMBOLISM [None]
  - SINUS TACHYCARDIA [None]
  - ABDOMINAL PAIN LOWER [None]
